FAERS Safety Report 7469448-5 (Version None)
Quarter: 2011Q2

REPORT INFORMATION
  Report Type: 
  Country: None (occurrence: None)
  Receive Date: 20110506
  Receipt Date: 20110506
  Transmission Date: 20111010
  Serious: Yes (Other)
  Sender: FDA-Public Use
  Company Number: None

PATIENT
  Sex: Female
  Weight: 77.1115 kg

DRUGS (3)
  1. ESTRACE [Suspect]
     Indication: BLOOD OESTROGEN DECREASED
     Dosage: 10MG ONCE A DAY PO
     Route: 048
     Dates: start: 20110220, end: 20110317
  2. ESTRACE [Suspect]
     Indication: MENOPAUSE
     Dosage: 10MG ONCE A DAY PO
     Route: 048
     Dates: start: 20110220, end: 20110317
  3. PROMETRIUM [Suspect]
     Dosage: 100MG ONCE A DAY PO
     Route: 048
     Dates: start: 20110220, end: 20110317

REACTIONS (15)
  - ARTHRALGIA [None]
  - ANXIETY [None]
  - NECK PAIN [None]
  - TENDONITIS [None]
  - AXILLARY PAIN [None]
  - BLOOD PRESSURE INCREASED [None]
  - TENDON DISORDER [None]
  - NODULE [None]
  - MUSCLE SPASMS [None]
  - LIPOMA [None]
  - MASS [None]
  - MUSCULOSKELETAL PAIN [None]
  - MUSCULAR WEAKNESS [None]
  - PERIPHERAL VASCULAR DISORDER [None]
  - PAIN IN EXTREMITY [None]
